FAERS Safety Report 6113131-5 (Version None)
Quarter: 2009Q1

REPORT INFORMATION
  Report Type: 
  Country: None (occurrence: None)
  Receive Date: 20090312
  Receipt Date: 20090304
  Transmission Date: 20090719
  Serious: Yes (Disabling)
  Sender: FDA-Public Use
  Company Number: US-MERCK-0810USA05283

PATIENT
  Age: 56 Year
  Sex: Female

DRUGS (4)
  1. FOSAMAX [Suspect]
     Indication: OSTEOPOROSIS
     Route: 048
     Dates: start: 20020901, end: 20030101
  2. FOSAMAX [Suspect]
     Route: 048
     Dates: start: 20040101, end: 20050101
  3. FOSAMAX [Suspect]
     Route: 048
     Dates: start: 20000701, end: 20000901
  4. FOSAMAX PLUS D [Suspect]
     Indication: OSTEOPOROSIS
     Route: 048
     Dates: start: 20050101, end: 20070101

REACTIONS (10)
  - ANXIETY [None]
  - GINGIVAL DISORDER [None]
  - IMPAIRED HEALING [None]
  - JAW DISORDER [None]
  - OEDEMA MOUTH [None]
  - ORAL INFECTION [None]
  - ORAL PAIN [None]
  - OSTEONECROSIS [None]
  - PERIODONTAL DISEASE [None]
  - WEIGHT INCREASED [None]
